FAERS Safety Report 7707395-1 (Version None)
Quarter: 2011Q3

REPORT INFORMATION
  Report Type: 
  Country: None (occurrence: None)
  Receive Date: 20110819
  Receipt Date: 20110803
  Transmission Date: 20111222
  Serious: Yes (Hospitalization)
  Sender: FDA-Public Use
  Company Number: 2011MA011246

PATIENT
  Age: 18 Year
  Sex: Female

DRUGS (1)
  1. PAREGORIC LIQUID USP (ALPHARMA) [Suspect]
     Indication: PAIN

REACTIONS (5)
  - CHEST PAIN [None]
  - LUNG INFILTRATION [None]
  - PYREXIA [None]
  - RESPIRATORY DISORDER [None]
  - ACUTE CHEST SYNDROME [None]
